FAERS Safety Report 4284040-1 (Version None)
Quarter: 2004Q1

REPORT INFORMATION
  Report Type: 
  Country: None (occurrence: None)
  Receive Date: 20040202
  Receipt Date: 20040202
  Transmission Date: 20041129
  Serious: Yes (Other)
  Sender: FDA-Public Use
  Company Number: None

PATIENT
  Sex: Male
  Weight: 74.8435 kg

DRUGS (4)
  1. ATENOLOL [Suspect]
     Indication: SURGERY
     Dosage: 25 MG ONE DOSE ORAL
     Route: 048
     Dates: start: 20040124, end: 20040124
  2. PROTONIX [Concomitant]
  3. PRAVACHOL [Concomitant]
  4. CALCIUM-CHANNEL BLOCKER [Concomitant]

REACTIONS (3)
  - BRADYCARDIA [None]
  - CHEST PAIN [None]
  - DIZZINESS [None]
